FAERS Safety Report 26075429 (Version 1)
Quarter: 2025Q4

REPORT INFORMATION
  Report Type: Other
  Country: US (occurrence: US)
  Receive Date: 20251121
  Receipt Date: 20251121
  Transmission Date: 20260118
  Serious: No
  Sender: VERASTEM
  Company Number: US-VERASTEM-251023US-AFCPK-00748

PATIENT

DRUGS (1)
  1. AVMAPKI FAKZYNJA CO-PACK [Suspect]
     Active Substance: AVUTOMETINIB POTASSIUM\DEFACTINIB HYDROCHLORIDE
     Indication: Ovarian cancer
     Dosage: AVMAPKI 3.2MG ONCE DAILY ON DAY 1 AND 4 OF WEEK 1-3, FAKZYNJA 200MG TWICE DAILY ON WEEK 1-3
     Route: 048
     Dates: start: 20250811

REACTIONS (5)
  - Somnolence [Unknown]
  - Alanine aminotransferase increased [Unknown]
  - Aspartate aminotransferase increased [Unknown]
  - Fatigue [Unknown]
  - Pruritus [Unknown]
